FAERS Safety Report 13521465 (Version 2)
Quarter: 2017Q2

REPORT INFORMATION
  Report Type: Report from Study
  Country: None (occurrence: FR)
  Receive Date: 20170508
  Receipt Date: 20170522
  Transmission Date: 20170830
  Serious: Yes (Other)
  Sender: FDA-Public Use
  Company Number: FR-ABBVIE-17K-056-1965504-00

PATIENT
  Age: 68 Year
  Sex: Male
  Weight: 58 kg

DRUGS (1)
  1. DUODOPA [Suspect]
     Active Substance: CARBIDOPA\LEVODOPA
     Indication: PARKINSON^S DISEASE
     Route: 050
     Dates: start: 201703

REACTIONS (2)
  - Pain in extremity [Not Recovered/Not Resolved]
  - Time perception altered [Not Recovered/Not Resolved]

NARRATIVE: CASE EVENT DATE: 20170502
